FAERS Safety Report 4411984-X (Version None)
Quarter: 2004Q3

REPORT INFORMATION
  Report Type: 
  Country: None (occurrence: None)
  Receive Date: 20040730
  Receipt Date: 20040601
  Transmission Date: 20050211
  Serious: Yes (Life-Threatening, Hospitalization)
  Sender: FDA-Public Use
  Company Number: GB-ROCHE-369458

PATIENT
  Age: 15 Year
  Sex: Male
  Weight: 54.4 kg

DRUGS (1)
  1. ROACCUTANE [Suspect]
     Indication: ACNE
     Dosage: TWO 20 MG TABLETS, ONE 10 MG TABLET.
     Route: 048
     Dates: start: 20040224, end: 20040615

REACTIONS (2)
  - DEPRESSION [None]
  - SUICIDE ATTEMPT [None]
